FAERS Safety Report 10384368 (Version 3)
Quarter: 2014Q4

REPORT INFORMATION
  Report Type: Report from Study
  Country: DE (occurrence: DE)
  Receive Date: 20140814
  Receipt Date: 20141216
  Transmission Date: 20150528
  Serious: Yes (Hospitalization)
  Sender: FDA-Public Use
  Company Number: DE-ABBVIE-14P-062-1255294-00

PATIENT
  Sex: Male
  Weight: 150 kg

DRUGS (4)
  1. HUMIRA [Suspect]
     Active Substance: ADALIMUMAB
     Indication: PSORIASIS
     Dosage: INITIAL DOSE
     Route: 058
     Dates: start: 20121106, end: 20121106
  2. HUMIRA [Suspect]
     Active Substance: ADALIMUMAB
     Dosage: APPROX. ONE WEEK AFTER THE INITIAL DOSE
     Route: 058
     Dates: start: 201211
  3. ENALAPRIL [Concomitant]
     Active Substance: ENALAPRIL
     Indication: PRODUCT USED FOR UNKNOWN INDICATION
     Dosage: 1-0-0, PERMANENT MEDICATION
  4. AMLODIPIN [Concomitant]
     Active Substance: AMLODIPINE BESYLATE
     Indication: PRODUCT USED FOR UNKNOWN INDICATION
     Dosage: 1-0-0, PERMANENT MEDICATION

REACTIONS (2)
  - Blepharitis [Unknown]
  - Intervertebral disc protrusion [Unknown]

NARRATIVE: CASE EVENT DATE: 2013
